FAERS Safety Report 4881092-2 (Version None)
Quarter: 2005Q4

REPORT INFORMATION
  Report Type: 
  Country: None (occurrence: None)
  Receive Date: 20051223
  Receipt Date: 20050921
  Transmission Date: 20060501
  Serious: No
  Sender: FDA-Public Use
  Company Number: 05P-163-0311528-00

PATIENT
  Age: 82 Year
  Sex: Female
  Weight: 49.4421 kg

DRUGS (8)
  1. HUMIRA [Suspect]
     Indication: RHEUMATOID ARTHRITIS
     Dosage: 40 MG, 1 IN 2 WK, SUBCUTANEOUS
     Route: 058
     Dates: start: 20030101, end: 20050801
  2. METHOTREXATE [Concomitant]
  3. FOLIC ACID [Concomitant]
  4. GLIPIZIDE [Concomitant]
  5. SINGULAIR [Concomitant]
  6. DYAZIDE [Concomitant]
  7. CALCIUM GLUCONATE [Concomitant]
  8. MULTIVITAMIN [Concomitant]

REACTIONS (4)
  - DYSPNOEA [None]
  - NASAL CONGESTION [None]
  - PYREXIA [None]
  - RESPIRATORY TRACT CONGESTION [None]
